FAERS Safety Report 5620525-0 (Version None)
Quarter: 2008Q1

REPORT INFORMATION
  Report Type: 
  Country: None (occurrence: None)
  Receive Date: 20080208
  Receipt Date: 20080204
  Transmission Date: 20080703
  Serious: Yes (Other)
  Sender: FDA-Public Use
  Company Number: US-BOEHRINGER INGELHEIM GMBH, GERMANY-2008-BP-01360BP

PATIENT
  Age: 37 Year
  Sex: Male

DRUGS (12)
  1. APTIVUS/RITONAVIR CAPSULES [Suspect]
     Indication: HIV INFECTION
     Dosage: TPV/RTV  1000/400MG
     Route: 048
     Dates: start: 20060110, end: 20080111
  2. RALTEGRAVIR [Suspect]
     Indication: HIV INFECTION
     Route: 048
     Dates: start: 20071204, end: 20080109
  3. RALTEGRAVIR [Suspect]
     Route: 048
     Dates: start: 20080130
  4. TENOFOVIR DISOPROXIL FUMARATE [Suspect]
     Indication: ANTIRETROVIRAL THERAPY
     Dates: start: 20060110, end: 20080111
  5. COMBIVIR [Suspect]
     Indication: ANTIRETROVIRAL THERAPY
     Route: 048
     Dates: start: 20060110, end: 20080111
  6. FUZEON [Concomitant]
     Indication: ANTIRETROVIRAL THERAPY
     Dates: start: 20060110, end: 20071203
  7. AMPRENAVIR [Concomitant]
     Indication: ANTIRETROVIRAL THERAPY
     Dates: start: 20010101, end: 20050101
  8. KALETRA [Concomitant]
     Indication: ANTIRETROVIRAL THERAPY
     Dates: start: 20010101, end: 20050101
  9. INDINIVIR SULFATE [Concomitant]
     Indication: ANTIRETROVIRAL THERAPY
     Dates: start: 19990101, end: 20010101
  10. ACYCLOVIR [Concomitant]
     Route: 048
     Dates: start: 20060101
  11. KLONOPIN [Concomitant]
     Dosage: 0.5 MG PRN QD
     Route: 048
  12. AMBIEN [Concomitant]
     Dosage: 10 MG PO QHS, PRN
     Route: 048

REACTIONS (1)
  - LIVER FUNCTION TEST ABNORMAL [None]
